FAERS Safety Report 16625129 (Version 5)
Quarter: 2020Q2

REPORT INFORMATION
  Report Type: Spontaneous
  Country: US (occurrence: US)
  Receive Date: 20190724
  Receipt Date: 20200501
  Transmission Date: 20200713
  Serious: No
  Sender: FDA-Public Use
  Company Number: US-PFIZER INC-2019311388

PATIENT
  Age: 55 Year
  Sex: Female

DRUGS (1)
  1. IBRANCE [Suspect]
     Active Substance: PALBOCICLIB
     Indication: BREAST CANCER FEMALE
     Dosage: 125 MG, UNK

REACTIONS (7)
  - Gait inability [Unknown]
  - Malaise [Unknown]
  - Asthenia [Unknown]
  - Renal pain [Unknown]
  - Cognitive disorder [Unknown]
  - Hypersomnia [Unknown]
  - Nervousness [Unknown]
